FAERS Safety Report 15690034 (Version 1)
Quarter: 2018Q4

REPORT INFORMATION
  Report Type: Spontaneous
  Country: US (occurrence: US)
  Receive Date: 20181205
  Receipt Date: 20181205
  Transmission Date: 20190205
  Serious: No
  Sender: FDA-Public Use
  Company Number: US-PFIZER INC-2018076684

PATIENT
  Age: 96 Year
  Sex: Male
  Weight: 58.96 kg

DRUGS (2)
  1. HYDROCORTISONE. [Suspect]
     Active Substance: HYDROCORTISONE
     Indication: ASTHENIA
     Dosage: 10 MG, AS NEEDED (1 TABLET TAKEN IN MORNING, 1 TABLET TAKEN IN EVENING IF NEED)(10MG DAILY WITH EXT)
     Route: 048
  2. HYDROCORTISONE. [Suspect]
     Active Substance: HYDROCORTISONE
     Indication: PITUITARY TUMOUR

REACTIONS (1)
  - Insomnia [Unknown]
